FAERS Safety Report 5214364-2 (Version None)
Quarter: 2007Q1

REPORT INFORMATION
  Report Type: 
  Country: None (occurrence: None)
  Receive Date: 20070122
  Receipt Date: 20050627
  Transmission Date: 20070707
  Serious: Yes (Hospitalization)
  Sender: FDA-Public Use
  Company Number: JP-GLAXOSMITHKLINE-B0382511A

PATIENT
  Age: 55 Year
  Sex: Male
  Weight: 67 kg

DRUGS (12)
  1. PAXIL [Suspect]
     Indication: DEPRESSION
     Route: 048
  2. ANAFRANIL [Concomitant]
     Indication: DEPRESSION
     Route: 042
     Dates: start: 20050105, end: 20050113
  3. LEVOTOMIN [Concomitant]
     Dosage: 15MG PER DAY
     Route: 048
     Dates: start: 20050105, end: 20050113
  4. MEILAX [Concomitant]
     Indication: ANXIETY
     Dosage: 4MG PER DAY
     Route: 048
     Dates: start: 20050121, end: 20050409
  5. LULLAN [Concomitant]
     Indication: DELUSION
     Route: 048
     Dates: start: 20050219, end: 20050312
  6. RISPERDAL [Concomitant]
     Indication: DELUSION
     Dosage: .5MG PER DAY
     Route: 048
     Dates: start: 20050328, end: 20050409
  7. NORITREN [Concomitant]
     Indication: DEPRESSION
     Dosage: 30MG PER DAY
     Route: 048
     Dates: start: 20050404, end: 20050411
  8. LENDORMIN [Concomitant]
     Indication: INSOMNIA
     Dosage: .25MG PER DAY
     Route: 048
     Dates: start: 20050121, end: 20050525
  9. NITRAZEPAM [Concomitant]
     Indication: INSOMNIA
     Dosage: 5MG PER DAY
     Route: 048
     Dates: start: 20050121
  10. BIPERIDEN HYDROCHLORIDE TAB [Concomitant]
     Indication: PARKINSONIAN GAIT
     Dosage: 3MG PER DAY
     Route: 048
     Dates: start: 20050402
  11. AMOBAN [Concomitant]
     Indication: INSOMNIA
     Route: 048
     Dates: start: 20041230
  12. LEXOTAN [Concomitant]
     Indication: ANXIETY
     Route: 048
     Dates: start: 20041230

REACTIONS (14)
  - COGNITIVE DISORDER [None]
  - COMA [None]
  - COORDINATION ABNORMAL [None]
  - DISORIENTATION [None]
  - DRUG WITHDRAWAL SYNDROME [None]
  - GAIT DISTURBANCE [None]
  - HYPERHIDROSIS [None]
  - INCONTINENCE [None]
  - MUSCLE TIGHTNESS [None]
  - PERSECUTORY DELUSION [None]
  - PYREXIA [None]
  - SEROTONIN SYNDROME [None]
  - SOMNOLENCE [None]
  - SPEECH DISORDER [None]
